FAERS Safety Report 6166674-2 (Version None)
Quarter: 2009Q2

REPORT INFORMATION
  Report Type: 
  Country: None (occurrence: None)
  Receive Date: 20090423
  Receipt Date: 20090423
  Transmission Date: 20091009
  Serious: Yes (Life-Threatening)
  Sender: FDA-Public Use
  Company Number: None

PATIENT
  Age: 31 Year
  Sex: Male
  Weight: 81.6475 kg

DRUGS (1)
  1. CYMBALTA [Suspect]
     Indication: PAIN
     Dosage: 60MG 1 DAILY PO
     Route: 048
     Dates: start: 20090326, end: 20090421

REACTIONS (3)
  - AGGRESSION [None]
  - IMPULSE-CONTROL DISORDER [None]
  - SUICIDAL IDEATION [None]
